FAERS Safety Report 17946085 (Version 4)
Quarter: 2020Q3

REPORT INFORMATION
  Report Type: Spontaneous
  Country: US (occurrence: US)
  Receive Date: 20200625
  Receipt Date: 20200812
  Transmission Date: 20201103
  Serious: Yes (Hospitalization)
  Sender: FDA-Public Use
  Company Number: US-SEATTLE GENETICS-2020SGN02271

PATIENT
  Sex: Female

DRUGS (5)
  1. TUKYSA [Suspect]
     Active Substance: TUCATINIB
     Dosage: 150 MG, BID
     Dates: start: 20200630
  2. CAPECITABINE. [Concomitant]
     Active Substance: CAPECITABINE
     Indication: BREAST CANCER FEMALE
  3. TUKYSA [Suspect]
     Active Substance: TUCATINIB
     Dosage: 300 MG, BID
     Dates: start: 20200706
  4. HERCEPTIN [Concomitant]
     Active Substance: TRASTUZUMAB
  5. TUKYSA [Suspect]
     Active Substance: TUCATINIB
     Indication: BREAST CANCER FEMALE
     Dosage: UNK

REACTIONS (11)
  - Blood calcium decreased [Unknown]
  - Oedema [Unknown]
  - Haemoglobin decreased [Unknown]
  - Diarrhoea [Recovered/Resolved]
  - Nausea [Unknown]
  - Echocardiogram abnormal [Unknown]
  - Fluid retention [Recovering/Resolving]
  - Pneumonia [Unknown]
  - Bone pain [Recovered/Resolved]
  - Back pain [Unknown]
  - Anaemia [Unknown]
